FAERS Safety Report 11917832 (Version 1)
Quarter: 2016Q1

REPORT INFORMATION
  Report Type: Report from Study
  Country: US (occurrence: US)
  Receive Date: 20160114
  Receipt Date: 20160114
  Transmission Date: 20160526
  Serious: Yes (Hospitalization, Other)
  Sender: FDA-Public Use
  Company Number: US-BRISTOL-MYERS SQUIBB COMPANY-BMS-2016-000652

PATIENT
  Age: 64 Year
  Sex: Male
  Weight: 66.67 kg

DRUGS (2)
  1. URELUMAB [Suspect]
     Active Substance: URELUMAB
     Indication: NON-HODGKIN^S LYMPHOMA
     Dosage: 8 MG, RECENT DOSE ON 04JAN2016
     Route: 042
     Dates: start: 20151207
  2. NIVOLUMAB [Suspect]
     Active Substance: NIVOLUMAB
     Indication: NON-HODGKIN^S LYMPHOMA
     Dosage: 240 MG, STARTED AT 07DEC2015 AND STOPPED AND RESTARTED AT 21DEC2015
     Route: 042
     Dates: start: 20151207

REACTIONS (1)
  - Tumour haemorrhage [Recovered/Resolved]

NARRATIVE: CASE EVENT DATE: 20160104
